FAERS Safety Report 19454182 (Version 1)
Quarter: 2021Q2

REPORT INFORMATION
  Report Type: Report from Study
  Country: US (occurrence: US)
  Receive Date: 20210623
  Receipt Date: 20210623
  Transmission Date: 20210717
  Serious: Yes (Other)
  Sender: FDA-Public Use
  Company Number: NVSC2021US130561

PATIENT
  Sex: Female

DRUGS (1)
  1. ENTRESTO [Suspect]
     Active Substance: SACUBITRIL\VALSARTAN
     Indication: CARDIAC DISORDER
     Dosage: 200 MG, BID (97/103 MG)
     Route: 048
     Dates: start: 202104

REACTIONS (3)
  - Blindness [Unknown]
  - Malaise [Unknown]
  - Product use in unapproved indication [Unknown]
